FAERS Safety Report 4991322-4 (Version None)
Quarter: 2006Q2

REPORT INFORMATION
  Report Type: 
  Country: None (occurrence: None)
  Receive Date: 20060428
  Receipt Date: 20060419
  Transmission Date: 20061013
  Serious: Yes (Hospitalization)
  Sender: FDA-Public Use
  Company Number: 163-C5013-06040249

PATIENT
  Age: 59 Year
  Sex: Male
  Weight: 91.2 kg

DRUGS (5)
  1. REVLIMID [Suspect]
     Indication: MULTIPLE MYELOMA
     Dosage: 25 MG, QD ON DAYS 1-21 Q28D, ORAL
     Route: 048
     Dates: start: 20060314
  2. DEXAMETHASONE TAB [Suspect]
     Indication: MULTIPLE MYELOMA
     Dosage: 40 MG, QD ON DAYS 1, 8, 15, + 22 Q28D, ORAL
     Route: 048
     Dates: start: 20060314
  3. ZOLEDRONIC ACID [Suspect]
     Indication: MULTIPLE MYELOMA
  4. MORPHINE [Concomitant]
  5. ASPIRIN [Concomitant]

REACTIONS (15)
  - BACK PAIN [None]
  - BLOOD GLUCOSE INCREASED [None]
  - CONFUSIONAL STATE [None]
  - DECUBITUS ULCER [None]
  - DEHYDRATION [None]
  - DEPRESSED LEVEL OF CONSCIOUSNESS [None]
  - DEVICE MIGRATION [None]
  - HAEMOGLOBIN DECREASED [None]
  - HYPERGLYCAEMIA [None]
  - LYMPHOPENIA [None]
  - PLATELET COUNT DECREASED [None]
  - RENAL FAILURE ACUTE [None]
  - SPINAL COMPRESSION FRACTURE [None]
  - STREPTOCOCCAL SEPSIS [None]
  - WHITE BLOOD CELL COUNT DECREASED [None]
